FAERS Safety Report 22134838 (Version 1)
Quarter: 2023Q1

REPORT INFORMATION
  Report Type: Spontaneous
  Country: US (occurrence: US)
  Receive Date: 20230324
  Receipt Date: 20230324
  Transmission Date: 20230417
  Serious: Yes (Other)
  Sender: FDA-Public Use
  Company Number: US-BAYER-2023A034089

PATIENT
  Age: 20 Year
  Sex: Female

DRUGS (2)
  1. ASPIRIN [Suspect]
     Active Substance: ASPIRIN
     Dosage: 40 DF, ONCE
  2. DIPHENHYDRAMINE [Suspect]
     Active Substance: DIPHENHYDRAMINE
     Dosage: 10 DF, ONCE

REACTIONS (5)
  - Suicide attempt [None]
  - Intentional overdose [None]
  - Renal tubular dysfunction [None]
  - Fanconi syndrome [None]
  - Toxicity to various agents [None]
